FAERS Safety Report 9656472 (Version 1)
Quarter: 2013Q4

REPORT INFORMATION
  Report Type: Spontaneous
  Country: US (occurrence: None)
  Receive Date: 20131029
  Receipt Date: 20131029
  Transmission Date: 20140711
  Serious: Yes (Life-Threatening)
  Sender: FDA-Public Use
  Company Number: None

PATIENT
  Age: 84 Year
  Sex: Male
  Weight: 78.2 kg

DRUGS (1)
  1. HETASTARCH [Suspect]
     Dates: start: 20130729, end: 20130729

REACTIONS (3)
  - Oxygen saturation decreased [None]
  - Hypotension [None]
  - Obstructive airways disorder [None]
